FAERS Safety Report 7590208-9 (Version None)
Quarter: 2011Q3

REPORT INFORMATION
  Report Type: 
  Country: None (occurrence: None)
  Receive Date: 20110705
  Receipt Date: 20110621
  Transmission Date: 20111222
  Serious: Yes (Hospitalization)
  Sender: FDA-Public Use
  Company Number: US-ACTELION-A-NJ2011-48653

PATIENT

DRUGS (4)
  1. TRACLEER [Suspect]
     Dosage: UNK
     Route: 048
     Dates: start: 20110506
  2. CALCIUM CHANNEL BLOCKERS [Concomitant]
  3. COUMADIN [Concomitant]
  4. TRACLEER [Suspect]
     Indication: PULMONARY ARTERIAL HYPERTENSION
     Dosage: UNK
     Route: 048
     Dates: start: 20100709, end: 20110101

REACTIONS (1)
  - MENTAL DISORDER [None]
